FAERS Safety Report 10698110 (Version 3)
Quarter: 2015Q2

REPORT INFORMATION
  Report Type: Spontaneous
  Country: US (occurrence: US)
  Receive Date: 20150108
  Receipt Date: 20150408
  Transmission Date: 20150821
  Serious: No
  Sender: FDA-Public Use
  Company Number: US-PFIZER INC-2015006562

PATIENT
  Age: 50 Year
  Sex: Female

DRUGS (10)
  1. LORTAB [Concomitant]
     Active Substance: ACETAMINOPHEN\HYDROCODONE BITARTRATE
     Dosage: UNK
     Dates: start: 2011
  2. LYRICA [Suspect]
     Active Substance: PREGABALIN
     Indication: FIBROMYALGIA
     Dosage: 20 MG, 1X/DAY
     Dates: start: 2011
  3. AMBIEN [Concomitant]
     Active Substance: ZOLPIDEM TARTRATE
     Dosage: UNK
     Dates: start: 2011
  4. TRAMADOL HCL [Suspect]
     Active Substance: TRAMADOL HYDROCHLORIDE
     Indication: PAIN
     Dosage: UNK, AS NEEDED
     Dates: start: 2011
  5. ASPIRIN. [Suspect]
     Active Substance: ASPIRIN
     Dosage: UNK
  6. PAXIL [Suspect]
     Active Substance: PAROXETINE HYDROCHLORIDE
     Indication: DEPRESSION
     Dosage: UNK
     Dates: start: 2011
  7. XANAX [Suspect]
     Active Substance: ALPRAZOLAM
     Indication: PANIC ATTACK
     Dosage: UNK, AS NEEDED
     Dates: start: 2011
  8. IRON [Suspect]
     Active Substance: IRON
     Indication: ANAEMIA
     Dosage: 1 DF, 1X/DAY
     Dates: start: 2013
  9. LIDOCAIN PATCH 5% [Concomitant]
     Dosage: UNK
     Dates: start: 2011
  10. ROBAXIN [Concomitant]
     Active Substance: METHOCARBAMOL
     Dosage: 1.5 DF, 4X/DAY

REACTIONS (1)
  - Drug hypersensitivity [Not Recovered/Not Resolved]
